FAERS Safety Report 5771614-1 (Version None)
Quarter: 2008Q2

REPORT INFORMATION
  Report Type: 
  Country: None (occurrence: None)
  Receive Date: 20080612
  Receipt Date: 20080612
  Transmission Date: 20081010
  Serious: Yes (Other)
  Sender: FDA-Public Use
  Company Number: None

PATIENT
  Age: 48 Year
  Sex: Female

DRUGS (1)
  1. PROPRANOLOL HYDROCHLORIDE [Suspect]
     Indication: TREMOR
     Dosage: 1 TABLET BY MOUTH ONCE DAILY
     Route: 048

REACTIONS (3)
  - ABDOMINAL PAIN [None]
  - DRUG EFFECT DECREASED [None]
  - LETHARGY [None]
